FAERS Safety Report 6593574-6 (Version None)
Quarter: 2010Q1

REPORT INFORMATION
  Report Type: 
  Country: None (occurrence: None)
  Receive Date: 20100222
  Receipt Date: 20090811
  Transmission Date: 20100710
  Serious: No
  Sender: FDA-Public Use
  Company Number: US-BRISTOL-MYERS SQUIBB COMPANY-14729248

PATIENT
  Age: 65 Year
  Sex: Female

DRUGS (1)
  1. ORENCIA [Suspect]
     Indication: RHEUMATOID ARTHRITIS
     Dosage: 3 DOSGAEFORM = 3 VIALS
     Route: 042
     Dates: start: 20090629

REACTIONS (3)
  - INCORRECT DOSE ADMINISTERED [None]
  - NO ADVERSE EVENT [None]
  - OVERDOSE [None]
